FAERS Safety Report 9969446 (Version 1)
Quarter: 2014Q1

REPORT INFORMATION
  Report Type: Spontaneous
  Country: NG (occurrence: NG)
  Receive Date: 20140306
  Receipt Date: 20140306
  Transmission Date: 20141002
  Serious: Yes (Other)
  Sender: FDA-Public Use
  Company Number: NG-ROCHE-1360166

PATIENT
  Sex: Male

DRUGS (1)
  1. PEGASYS [Suspect]
     Indication: HEPATITIS B
     Dosage: ON THERAPY FOR 20 WEEKS
     Route: 065

REACTIONS (2)
  - Hepatitis B surface antigen positive [Unknown]
  - Weight decreased [Unknown]
